FAERS Safety Report 4588645-X (Version None)
Quarter: 2005Q1

REPORT INFORMATION
  Report Type: 
  Country: None (occurrence: None)
  Receive Date: 20050222
  Receipt Date: 20050216
  Transmission Date: 20050727
  Serious: Yes (Other)
  Sender: FDA-Public Use
  Company Number: PHRM2005FR00841

PATIENT
  Age: 52 Year
  Sex: Female

DRUGS (6)
  1. CLOZARIL [Suspect]
     Indication: SCHIZOPHRENIA
     Dosage: 150 MG DAILY
     Route: 048
     Dates: start: 20041115, end: 20050209
  2. IMOVANE [Concomitant]
  3. DEROXAT [Concomitant]
  4. RIVOTRIL [Concomitant]
  5. LITHIUM [Concomitant]
  6. PRAXINOR [Concomitant]

REACTIONS (2)
  - LUNG DISORDER [None]
  - NEUTROPENIA [None]
